FAERS Safety Report 23627395 (Version 1)
Quarter: 2024Q1

REPORT INFORMATION
  Report Type: Spontaneous
  Country: CN (occurrence: CN)
  Receive Date: 20240313
  Receipt Date: 20240313
  Transmission Date: 20240410
  Serious: Yes (Disabling, Other)
  Sender: FDA-Public Use
  Company Number: CN-ABBVIE-5671154

PATIENT
  Age: 72 Year
  Sex: Male

DRUGS (1)
  1. VENETOCLAX [Suspect]
     Active Substance: VENETOCLAX
     Indication: Plasma cell myeloma
     Dosage: 100 MILLIGRAM
     Route: 048
     Dates: start: 20240207, end: 20240207

REACTIONS (4)
  - Pulmonary alveolar haemorrhage [Unknown]
  - Thrombocytopenia [Not Recovered/Not Resolved]
  - Pneumonia viral [Unknown]
  - Respiratory failure [Unknown]

NARRATIVE: CASE EVENT DATE: 20240101
